FAERS Safety Report 9089423 (Version 2)
Quarter: 2013Q2

REPORT INFORMATION
  Report Type: Spontaneous
  Country: US (occurrence: US)
  Receive Date: 20130218
  Receipt Date: 20130516
  Transmission Date: 20140414
  Serious: Yes (Other)
  Sender: FDA-Public Use
  Company Number: US-MILLENNIUM PHARMACEUTICALS, INC.-2013-01330

PATIENT
  Age: 83 Year
  Sex: Male
  Weight: 55 kg

DRUGS (3)
  1. VELCADE [Suspect]
     Indication: MANTLE CELL LYMPHOMA
     Dosage: UNK UNK, CYCLIC
     Route: 065
  2. VELCADE [Suspect]
     Dosage: UNK, CYCLIC
     Route: 065
  3. RITUXIMAB [Suspect]
     Indication: MANTLE CELL LYMPHOMA
     Dosage: UNK, CYCLIC
     Route: 065

REACTIONS (4)
  - Malignant pleural effusion [Unknown]
  - Ascites [Unknown]
  - Disease progression [Unknown]
  - Neuropathy peripheral [Unknown]
